FAERS Safety Report 5036384-3 (Version None)
Quarter: 2006Q2

REPORT INFORMATION
  Report Type: 
  Country: None (occurrence: None)
  Receive Date: 20060601
  Receipt Date: 20060419
  Transmission Date: 20061013
  Serious: No
  Sender: FDA-Public Use
  Company Number: US200604003257

PATIENT
  Age: 55 Year
  Sex: Female

DRUGS (2)
  1. CYMBALTA [Suspect]
     Dosage: 20 MG ; 40 MG, EACH EVENING
     Dates: start: 20060418, end: 20060101
  2. CYMBALTA [Suspect]
     Dosage: 20 MG ; 40 MG, EACH EVENING
     Dates: start: 20060401

REACTIONS (7)
  - CHILLS [None]
  - FATIGUE [None]
  - HYPERSOMNIA [None]
  - NAUSEA [None]
  - PARAESTHESIA [None]
  - SOMNOLENCE [None]
  - YAWNING [None]
